FAERS Safety Report 16387097 (Version 2)
Quarter: 2019Q2

REPORT INFORMATION
  Report Type: Spontaneous
  Country: BR (occurrence: BR)
  Receive Date: 20190604
  Receipt Date: 20190605
  Transmission Date: 20190711
  Serious: Yes (Death, Hospitalization, Other)
  Sender: FDA-Public Use
  Company Number: BR-009507513-1906BRA000186

PATIENT
  Sex: Female
  Weight: 65 kg

DRUGS (4)
  1. KEYTRUDA [Suspect]
     Active Substance: PEMBROLIZUMAB
     Indication: METASTASES TO LIVER
     Dosage: 200 MILLIGRAM
     Dates: start: 20190124
  2. KEYTRUDA [Suspect]
     Active Substance: PEMBROLIZUMAB
     Indication: METASTASES TO LUNG
     Dosage: 200 MILLIGRAM
     Dates: start: 20190214
  3. KEYTRUDA [Suspect]
     Active Substance: PEMBROLIZUMAB
     Dosage: 200 MILLIGRAM
     Dates: start: 20190307
  4. KEYTRUDA [Suspect]
     Active Substance: PEMBROLIZUMAB
     Indication: COLON NEOPLASM
     Dosage: 200 MILLIGRAM
     Dates: start: 20190103

REACTIONS (4)
  - Abdominal pain upper [Unknown]
  - Death [Fatal]
  - Malignant neoplasm progression [Unknown]
  - Product use in unapproved indication [Unknown]

NARRATIVE: CASE EVENT DATE: 20190103
